FAERS Safety Report 13101672 (Version 3)
Quarter: 2019Q3

REPORT INFORMATION
  Report Type: Spontaneous
  Country: US (occurrence: US)
  Receive Date: 20170110
  Receipt Date: 20190827
  Transmission Date: 20191004
  Serious: Yes (Other)
  Sender: FDA-Public Use
  Company Number: US-ASTRAZENECA-2017SE02076

PATIENT
  Sex: Female

DRUGS (1)
  1. SEROQUEL [Suspect]
     Active Substance: QUETIAPINE FUMARATE
     Route: 048
     Dates: start: 2005, end: 2005

REACTIONS (11)
  - Fall [Unknown]
  - Migraine [Unknown]
  - Blindness [Unknown]
  - Dizziness [Unknown]
  - Weight fluctuation [Unknown]
  - Tooth fracture [Unknown]
  - Multiple fractures [Not Recovered/Not Resolved]
  - Electrolyte imbalance [Unknown]
  - Drug interaction [Unknown]
  - Hypertension [Unknown]
  - Cataract [Unknown]
